FAERS Safety Report 23974226 (Version 2)
Quarter: 2024Q4

REPORT INFORMATION
  Report Type: Report from Study
  Country: US (occurrence: US)
  Receive Date: 20240614
  Receipt Date: 20241231
  Transmission Date: 20250115
  Serious: Yes (Other)
  Sender: ABBVIE
  Company Number: US-ABBVIE-5799001

PATIENT
  Age: 80 Year
  Sex: Female

DRUGS (3)
  1. RINVOQ [Suspect]
     Active Substance: UPADACITINIB
     Indication: Rheumatoid arthritis
     Dosage: FORM STRENGTH: 15 MILLIGRAM
     Route: 048
     Dates: start: 2024
  2. RINVOQ [Suspect]
     Active Substance: UPADACITINIB
     Indication: Rheumatoid arthritis
     Dosage: FORM STRENGTH: 15 MILLIGRAM
     Route: 048
     Dates: start: 202307, end: 2024
  3. COVID-19 vaccine [Concomitant]
     Indication: Product used for unknown indication
     Route: 042
     Dates: start: 202409, end: 202409

REACTIONS (4)
  - Breast cancer [Unknown]
  - Dizziness [Recovered/Resolved]
  - Rheumatoid arthritis [Not Recovered/Not Resolved]
  - Mobility decreased [Unknown]

NARRATIVE: CASE EVENT DATE: 20240101
